FAERS Safety Report 7353201-7 (Version None)
Quarter: 2011Q1

REPORT INFORMATION
  Report Type: 
  Country: None (occurrence: None)
  Receive Date: 20110310
  Receipt Date: 20110310
  Transmission Date: 20110831
  Serious: Yes (Disabling)
  Sender: FDA-Public Use
  Company Number: None

PATIENT
  Sex: Female
  Weight: 44.5 kg

DRUGS (1)
  1. CHLORTHALIDONE [Suspect]
     Indication: HYPERTENSION
     Dosage: 1 Q.D.
     Dates: start: 20101007, end: 20101008

REACTIONS (1)
  - LOSS OF CONTROL OF LEGS [None]
